FAERS Safety Report 5628932-7 (Version None)
Quarter: 2008Q1

REPORT INFORMATION
  Report Type: 
  Country: None (occurrence: None)
  Receive Date: 20080214
  Receipt Date: 20080201
  Transmission Date: 20080703
  Serious: Yes (Death)
  Sender: FDA-Public Use
  Company Number: 023570

PATIENT
  Age: 52 Year
  Sex: Female

DRUGS (11)
  1. FLUOXETINE [Suspect]
     Dosage: ORAL
     Route: 048
  2. TIZANIDINE HCL [Suspect]
     Dosage: ORAL
     Route: 048
  3. IBUPROFEN [Suspect]
     Dosage: ORAL
     Route: 048
  4. FENTANYL [Suspect]
     Dosage: ORAL
     Route: 048
  5. DOXEPIN HCL [Suspect]
     Dosage: ORAL
     Route: 048
  6. AMOXICILLIN [Suspect]
     Dosage: ORAL
     Route: 048
  7. ATORVASTATIN CALCIUM [Suspect]
     Dosage: ORAL
     Route: 048
  8. OXYCODONE HCL [Suspect]
     Dosage: ORAL
     Route: 048
  9. BUPROPION HCL [Suspect]
     Dosage: ORAL
     Route: 048
  10. PREGABALIN(PREGABALIN) [Suspect]
     Dosage: ORAL
     Route: 048
  11. METHOCARBAMOL [Suspect]
     Dosage: ORAL
     Route: 048

REACTIONS (2)
  - CARDIAC ARREST [None]
  - RESPIRATORY ARREST [None]
